FAERS Safety Report 12333684 (Version 2)
Quarter: 2016Q4

REPORT INFORMATION
  Report Type: Spontaneous
  Country: US (occurrence: US)
  Receive Date: 20160504
  Receipt Date: 20161013
  Transmission Date: 20170207
  Serious: No
  Sender: FDA-Public Use
  Company Number: US-ROCHE-1664105

PATIENT
  Sex: Female

DRUGS (1)
  1. ESBRIET [Suspect]
     Active Substance: PIRFENIDONE
     Indication: IDIOPATHIC PULMONARY FIBROSIS
     Route: 048
     Dates: start: 20150827

REACTIONS (6)
  - Cough [Unknown]
  - Weight decreased [Unknown]
  - Nausea [Unknown]
  - Dysgeusia [Unknown]
  - Decreased appetite [Unknown]
  - Fatigue [Unknown]
